FAERS Safety Report 7908779-9 (Version None)
Quarter: 2011Q4

REPORT INFORMATION
  Report Type: 
  Country: None (occurrence: None)
  Receive Date: 20111111
  Receipt Date: 20111107
  Transmission Date: 20120403
  Serious: No
  Sender: FDA-Public Use
  Company Number: US-PFIZER INC-2011272358

PATIENT
  Sex: Male
  Weight: 78.458 kg

DRUGS (8)
  1. LYRICA [Suspect]
     Dosage: 150 MG, 3X/DAY
  2. LYRICA [Suspect]
     Dosage: 200 MG, 3X/DAY
  3. GABAPENTIN [Suspect]
     Indication: NEUROPATHY PERIPHERAL
     Dosage: 600 MG, 3X/DAY
     Dates: start: 20100601, end: 20110201
  4. LYRICA [Suspect]
     Indication: NEUROPATHY PERIPHERAL
     Dosage: 100 MG, 3X/DAY
     Dates: start: 20110201
  5. RITALIN [Concomitant]
     Indication: ATTENTION DEFICIT/HYPERACTIVITY DISORDER
     Dosage: 20 MG, 3X/DAY
  6. VIAGRA [Suspect]
     Indication: ERECTILE DYSFUNCTION
     Dosage: 100 MG, AS NEEDED
     Route: 048
     Dates: start: 20100101, end: 20111001
  7. ACETYLSALICYLIC ACID [Concomitant]
     Indication: BLOOD CHOLESTEROL INCREASED
     Dosage: 325 MG, 1X/DAY
  8. CRESTOR [Concomitant]
     Indication: BLOOD CHOLESTEROL INCREASED
     Dosage: 200 MG, 1X/DAY

REACTIONS (5)
  - DRUG INEFFECTIVE [None]
  - NEUROPATHY PERIPHERAL [None]
  - ERECTILE DYSFUNCTION [None]
  - PAIN [None]
  - ANORGASMIA [None]
